FAERS Safety Report 7955775-1 (Version None)
Quarter: 2011Q4

REPORT INFORMATION
  Report Type: 
  Country: None (occurrence: None)
  Receive Date: 20111205
  Receipt Date: 20111125
  Transmission Date: 20120403
  Serious: Yes (Other)
  Sender: FDA-Public Use
  Company Number: FR-AMGEN-FRASP2011063347

PATIENT
  Age: 49 Year
  Sex: Female

DRUGS (6)
  1. METHOTREXATE [Concomitant]
     Indication: RHEUMATOID ARTHRITIS
     Dosage: 7.5 MG, WEEKLY
  2. CYCLOSPORINE [Concomitant]
     Indication: SJOGREN'S SYNDROME
     Dosage: UNK
     Dates: start: 20070901
  3. ACTONEL [Suspect]
     Dosage: 35 MG, WEEKLY
     Dates: start: 20010101, end: 20080201
  4. PREDNISONE TAB [Concomitant]
     Indication: RHEUMATOID ARTHRITIS
     Dosage: 7.5 MG, QD
  5. ENBREL [Suspect]
     Indication: RHEUMATOID ARTHRITIS
     Dosage: 25 MG, 2X/WEEK
     Dates: start: 20061101, end: 20071101
  6. CALCIUM CARBONATE [Concomitant]
     Dosage: 1 DF, 1X/DAY

REACTIONS (1)
  - SCLERITIS [None]
